FAERS Safety Report 15501947 (Version 4)
Quarter: 2018Q4

REPORT INFORMATION
  Report Type: Spontaneous
  Country: US (occurrence: US)
  Receive Date: 20181015
  Receipt Date: 20181123
  Transmission Date: 20190205
  Serious: Yes (Other)
  Sender: FDA-Public Use
  Company Number: US-AMGEN-USASP2018109922

PATIENT
  Age: 41 Year
  Sex: Female
  Weight: 127.44 kg

DRUGS (8)
  1. NPLATE [Suspect]
     Active Substance: ROMIPLOSTIM
     Indication: IMMUNE THROMBOCYTOPENIC PURPURA
     Dosage: 129 MUG, QWK
     Route: 058
     Dates: start: 20180607
  2. NPLATE [Suspect]
     Active Substance: ROMIPLOSTIM
     Dosage: 257 MUG, QWK
     Route: 058
     Dates: start: 20180614
  3. NPLATE [Suspect]
     Active Substance: ROMIPLOSTIM
     Dosage: 388 MUG, QWK
     Route: 058
     Dates: start: 20180702
  4. NPLATE [Suspect]
     Active Substance: ROMIPLOSTIM
     Dosage: 649 MUG, QWK
     Route: 058
     Dates: start: 20180724
  5. NPLATE [Suspect]
     Active Substance: ROMIPLOSTIM
     Dosage: 518 MUG, QWK
     Route: 058
     Dates: start: 20180710
  6. NPLATE [Suspect]
     Active Substance: ROMIPLOSTIM
     Dosage: 908 MUG, QWK
     Route: 058
     Dates: start: 20180807
  7. NPLATE [Suspect]
     Active Substance: ROMIPLOSTIM
     Dosage: 257 MUG, QWK
     Route: 058
     Dates: start: 20180622
  8. NPLATE [Suspect]
     Active Substance: ROMIPLOSTIM
     Dosage: 778 MUG, QWK
     Route: 058
     Dates: start: 20180731

REACTIONS (2)
  - Platelet count abnormal [Unknown]
  - Therapy non-responder [Unknown]

NARRATIVE: CASE EVENT DATE: 20180724
